FAERS Safety Report 4383743-8 (Version None)
Quarter: 2004Q2

REPORT INFORMATION
  Report Type: 
  Country: None (occurrence: None)
  Receive Date: 20040608
  Receipt Date: 20030714
  Transmission Date: 20050107
  Serious: Yes (Other)
  Sender: FDA-Public Use
  Company Number: 200312425BCC

PATIENT
  Age: 70 Year
  Sex: Female
  Weight: 61.2356 kg

DRUGS (3)
  1. ALEVE [Suspect]
     Indication: BACK PAIN
     Dosage: 220 MG, ONCE, ORAL
     Route: 048
     Dates: start: 20030711
  2. FOSAMAX [Concomitant]
  3. LIPITOR [Concomitant]

REACTIONS (5)
  - ANAPHYLACTIC REACTION [None]
  - DYSPNOEA [None]
  - LOCAL SWELLING [None]
  - SWELLING [None]
  - SWELLING FACE [None]
